FAERS Safety Report 9527069 (Version 1)
Quarter: 2013Q3

REPORT INFORMATION
  Report Type: Report from Study
  Country: US (occurrence: US)
  Receive Date: 20130916
  Receipt Date: 20130916
  Transmission Date: 20140515
  Serious: Yes (Hospitalization)
  Sender: FDA-Public Use
  Company Number: US-ABBVIE-13P-163-1147199-00

PATIENT
  Age: 46 Year
  Sex: Female
  Weight: 77.18 kg

DRUGS (4)
  1. HUMIRA [Suspect]
     Indication: PSORIATIC ARTHROPATHY
     Dates: start: 201307, end: 201308
  2. HUMIRA [Suspect]
     Dates: start: 20130902
  3. DOXYCYCLINE [Concomitant]
     Indication: INFECTION
  4. METFORMIN [Concomitant]
     Indication: DIABETES MELLITUS

REACTIONS (3)
  - Pyrexia [Recovered/Resolved]
  - Cellulitis [Recovered/Resolved]
  - Sunburn [Recovered/Resolved]
